FAERS Safety Report 8779350 (Version 1)
Quarter: 2012Q4

REPORT INFORMATION
  Report Type: 
  Country: US (occurrence: US)
  Receive Date: 20120912
  Receipt Date: 20120912
  Transmission Date: 20130627
  Serious: Yes (Hospitalization, Other)
  Sender: FDA-Public Use
  Company Number: US-BAYER-2012-094359

PATIENT
  Age: 44 Year
  Sex: Female

DRUGS (6)
  1. BETASERON [Suspect]
     Indication: MULTIPLE SCLEROSIS
     Dosage: UNK
     Dates: start: 20110203, end: 20110709
  2. BETASERON [Suspect]
     Indication: MULTIPLE SCLEROSIS
     Dosage: UNK
     Dates: start: 20120222, end: 20120831
  3. ANTIBIOTICS [Concomitant]
  4. KEPPRA [Concomitant]
     Dosage: 3000 mg, QD
  5. TRILEPTAL [Concomitant]
  6. ATIVAN [Concomitant]

REACTIONS (4)
  - Systemic lupus erythematosus [None]
  - Pneumonia [Recovered/Resolved]
  - Muscular weakness [Not Recovered/Not Resolved]
  - Neuralgia [Not Recovered/Not Resolved]
